FAERS Safety Report 6981928-5 (Version None)
Quarter: 2010Q3

REPORT INFORMATION
  Report Type: 
  Country: None (occurrence: None)
  Receive Date: 20100914
  Receipt Date: 20091009
  Transmission Date: 20110219
  Serious: No
  Sender: FDA-Public Use
  Company Number: US-PFIZER INC-2009281866

PATIENT
  Sex: Male

DRUGS (6)
  1. LYRICA [Suspect]
     Indication: PARAESTHESIA
     Dosage: UNK
     Dates: start: 20070101
  2. SIMVASTATIN [Concomitant]
     Dosage: UNK
  3. SPIRIVA [Concomitant]
     Dosage: UNK
  4. PROAIR HFA [Concomitant]
     Dosage: UNK
  5. SYMBICORT [Concomitant]
     Dosage: UNK
  6. ALBUTEROL [Concomitant]
     Dosage: UNK

REACTIONS (1)
  - DYSPNOEA [None]
